FAERS Safety Report 5843081-0 (Version None)
Quarter: 2008Q3

REPORT INFORMATION
  Report Type: 
  Country: None (occurrence: None)
  Receive Date: 20080808
  Receipt Date: 20080623
  Transmission Date: 20090109
  Serious: Yes (Hospitalization)
  Sender: FDA-Public Use
  Company Number: GXKR2008DK07236

PATIENT
  Age: 55 Year
  Sex: Male

DRUGS (1)
  1. CORODIL (NGX) (ENALAPRIL MALEATE) TABLET, 5MG [Suspect]
     Indication: HYPERTENSION
     Dosage: 5 MG/DAY, ORAL
     Route: 048
     Dates: start: 20070123, end: 20070329

REACTIONS (7)
  - CONNECTIVE TISSUE DISORDER [None]
  - GAIT DISTURBANCE [None]
  - PAIN [None]
  - RASH GENERALISED [None]
  - RESTLESS LEGS SYNDROME [None]
  - SKIN EXFOLIATION [None]
  - TOXIC SKIN ERUPTION [None]
